FAERS Safety Report 18556600 (Version 8)
Quarter: 2021Q4

REPORT INFORMATION
  Report Type: Report from Study
  Country: US (occurrence: US)
  Receive Date: 20201128
  Receipt Date: 20211220
  Transmission Date: 20220303
  Serious: Yes (Hospitalization, Other)
  Sender: FDA-Public Use
  Company Number: US-SHIRE-US202016583

PATIENT
  Age: 83 Year
  Sex: Female

DRUGS (1)
  1. HUMAN IMMUNOGLOBULIN G\HYALURONIDASE RECOMBINANT HUMAN [Suspect]
     Active Substance: HUMAN IMMUNOGLOBULIN G\HYALURONIDASE RECOMBINANT HUMAN
     Indication: Immunodeficiency common variable
     Dosage: 35 GRAM
     Route: 065

REACTIONS (21)
  - Fall [Unknown]
  - Visual impairment [Unknown]
  - Limb injury [Unknown]
  - Transient ischaemic attack [Unknown]
  - Intervertebral disc protrusion [Unknown]
  - Arrhythmia [Unknown]
  - Nephrolithiasis [Unknown]
  - Rheumatoid arthritis [Unknown]
  - Hiatus hernia [Unknown]
  - Musculoskeletal stiffness [Unknown]
  - Back pain [Unknown]
  - Back injury [Unknown]
  - Renal stone removal [Unknown]
  - Pain in extremity [Unknown]
  - Peripheral swelling [Unknown]
  - Osteoporosis [Unknown]
  - Osteopenia [Unknown]
  - Trigger finger [Unknown]
  - Cardiovascular disorder [Unknown]
  - Blood citric acid increased [Unknown]
  - Headache [Unknown]

NARRATIVE: CASE EVENT DATE: 20210323
